FAERS Safety Report 7535280-7 (Version None)
Quarter: 2011Q2

REPORT INFORMATION
  Report Type: 
  Country: None (occurrence: None)
  Receive Date: 20110609
  Receipt Date: 20080131
  Transmission Date: 20111010
  Serious: Yes (Hospitalization, Other)
  Sender: FDA-Public Use
  Company Number: PHMT2006CA00911

PATIENT
  Sex: Female

DRUGS (10)
  1. SANDOSTATIN LAR [Suspect]
     Dosage: 20 MG EVERY 25 DAYS
     Route: 030
  2. MORPHINE SULFATE [Concomitant]
     Dosage: 220 MG,
  3. OXYCONTIN [Concomitant]
  4. ANTIINFLAMMATORY/ANTIRHEUMATIC PRODUCTS [Concomitant]
     Dosage: UNK
  5. FENTANYL [Concomitant]
  6. MORPHINE [Concomitant]
  7. MORPHINE SULFATE [Concomitant]
  8. MORPHINE SULFATE [Concomitant]
  9. IRON IN OTHER COMBINATIONS [Concomitant]
  10. SANDOSTATIN LAR [Suspect]
     Indication: CARCINOID TUMOUR
     Dosage: 20 MG EVERY 4 WEEKS
     Route: 030
     Dates: start: 20040910

REACTIONS (10)
  - BONE DISORDER [None]
  - HOT FLUSH [None]
  - SYNOVIAL CYST [None]
  - BONE PAIN [None]
  - LOCALISED OEDEMA [None]
  - GASTROINTESTINAL PAIN [None]
  - OEDEMA PERIPHERAL [None]
  - PAIN [None]
  - BACK PAIN [None]
  - BLOOD URINE PRESENT [None]
